FAERS Safety Report 15313046 (Version 1)
Quarter: 2018Q3

REPORT INFORMATION
  Report Type: Spontaneous
  Country: US (occurrence: US)
  Receive Date: 20180814
  Receipt Date: 20180814
  Transmission Date: 20181010
  Serious: Yes (Disabling)
  Sender: FDA-Public Use
  Company Number: None

PATIENT
  Age: 69 Year
  Sex: Female

DRUGS (1)
  1. FLUOROURACIL. [Suspect]
     Active Substance: FLUOROURACIL
     Indication: ACTINIC KERATOSIS
     Dosage: ?          QUANTITY:1 5%;?
     Route: 061
     Dates: start: 20180406, end: 20180504

REACTIONS (2)
  - Urinary tract infection [None]
  - Cellulitis [None]

NARRATIVE: CASE EVENT DATE: 20180507
